FAERS Safety Report 5128323-1 (Version None)
Quarter: 2006Q4

REPORT INFORMATION
  Report Type: 
  Country: None (occurrence: None)
  Receive Date: 20061011
  Receipt Date: 20060926
  Transmission Date: 20070319
  Serious: Yes (Other)
  Sender: FDA-Public Use
  Company Number: WAES 0609USA05685

PATIENT
  Sex: 0

DRUGS (4)
  1. DECADRON [Suspect]
     Indication: PROSTATE CANCER
     Dosage: 0.5-1.0 MG/DAILY PO
     Route: 048
  2. UFT [Concomitant]
  3. CISPLATIN [Concomitant]
  4. HORMONES (UNSPECIFIED) [Concomitant]

REACTIONS (1)
  - PULMONARY INFARCTION [None]
